FAERS Safety Report 8799742 (Version 1)
Quarter: 2012Q4

REPORT INFORMATION
  Report Type: Spontaneous
  Country: DE (occurrence: None)
  Receive Date: 20120917
  Receipt Date: 20120917
  Transmission Date: 20130627
  Serious: Yes (Life-Threatening, Hospitalization, Disabling)
  Sender: FDA-Public Use
  Company Number: 2012033358

PATIENT
  Age: 8 Year
  Sex: Female

DRUGS (6)
  1. PRIVIGEN (IMMUNE GLOBULIN INTRAVENOUS (HUMAN) 10% LIQUID) [Suspect]
     Indication: ACUTE DISSEMINATED ENCEPHALOMYELITIS
     Dosage: 25 g qd,  4th administration, Intravenous (not otherwise specified)
     Route: 042
     Dates: start: 20120820, end: 20120820
  2. PRIVIGEN (IMMUNE GLOBULIN INTRAVENOUS (HUMAN) 10% LIQUID) [Suspect]
     Indication: ACUTE DISSEMINATED ENCEPHALOMYELITIS
     Dosage: 20 g qd,  4th administration, Intravenous (not otherwise specified)
     Route: 042
     Dates: start: 20120821, end: 20120821
  3. PRIVIGEN (IMMUNE GLOBULIN INTRAVENOUS (HUMAN) 10% LIQUID) [Suspect]
     Indication: ACUTE DISSEMINATED ENCEPHALOMYELITIS
     Dosage: 1st to 3rd administration
     Route: 042
  4. TAVEGIL (CLEMASTINE) [Concomitant]
  5. SOSTRIL (RANITIDINE HYDROCHLORIDE) [Concomitant]
  6. ZOFRAN (ONDANSETRON) [Concomitant]

REACTIONS (5)
  - Grand mal convulsion [None]
  - Somnolence [None]
  - Nausea [None]
  - Vomiting [None]
  - Headache [None]
